APPROVED DRUG PRODUCT: POLYMYXIN B SULFATE
Active Ingredient: POLYMYXIN B SULFATE
Strength: EQ 500,000 UNITS BASE/VIAL
Dosage Form/Route: INJECTABLE;INJECTION
Application: A090110 | Product #001
Applicant: RISING PHARMA HOLDING INC
Approved: Jun 29, 2011 | RLD: No | RS: No | Type: DISCN